FAERS Safety Report 4511910-9 (Version None)
Quarter: 2004Q4

REPORT INFORMATION
  Report Type: 
  Country: None (occurrence: None)
  Receive Date: 20041129
  Receipt Date: 20041115
  Transmission Date: 20050328
  Serious: Yes (Death)
  Sender: FDA-Public Use
  Company Number: FR-JNJFOC-20041104292

PATIENT
  Age: 1 Day
  Sex: Male

DRUGS (2)
  1. EPITOMAX [Suspect]
     Indication: DRUG USE FOR UNKNOWN INDICATION
     Dosage: 15MG IN THE MORNING AND 25MG AT NIGHT.
     Route: 015
  2. KEPPRA [Concomitant]
     Route: 065

REACTIONS (4)
  - CONGENITAL DIAPHRAGMATIC ANOMALY [None]
  - DRUG EXPOSURE DURING PREGNANCY [None]
  - PREMATURE BABY [None]
  - PULMONARY HYPOPLASIA [None]
